FAERS Safety Report 8302251-2 (Version None)
Quarter: 2012Q2

REPORT INFORMATION
  Report Type: 
  Country: None (occurrence: None)
  Receive Date: 20120420
  Receipt Date: 20120410
  Transmission Date: 20120825
  Serious: Yes (Hospitalization)
  Sender: FDA-Public Use
  Company Number: US-JNJFOC-20120209132

PATIENT
  Sex: Female
  Weight: 42.3 kg

DRUGS (4)
  1. MESALAMINE [Concomitant]
     Route: 048
  2. REMICADE [Suspect]
     Indication: CROHN'S DISEASE
     Route: 042
     Dates: start: 20090207, end: 20101208
  3. HUMIRA [Concomitant]
     Dates: start: 20101203
  4. ANTIBIOTICS [Concomitant]
     Indication: INFLAMMATORY BOWEL DISEASE

REACTIONS (2)
  - CLOSTRIDIAL INFECTION [None]
  - CROHN'S DISEASE [None]
